FAERS Safety Report 7409561-1 (Version None)
Quarter: 2011Q2

REPORT INFORMATION
  Report Type: 
  Country: None (occurrence: None)
  Receive Date: 20110412
  Receipt Date: 20110407
  Transmission Date: 20111010
  Serious: Yes (Other)
  Sender: FDA-Public Use
  Company Number: DE-MERCK-1103DEU00063

PATIENT
  Age: 68 Year
  Sex: Female

DRUGS (3)
  1. BIMATOPROST [Suspect]
     Route: 047
  2. SALICYLIC ACID [Suspect]
     Route: 047
  3. TRUSOPT [Suspect]
     Indication: GLAUCOMA
     Route: 047
     Dates: start: 20101206, end: 20110101

REACTIONS (2)
  - HYPERSENSITIVITY [None]
  - SPINAL FRACTURE [None]
